FAERS Safety Report 14081327 (Version 7)
Quarter: 2018Q3

REPORT INFORMATION
  Report Type: Spontaneous
  Country: US (occurrence: US)
  Receive Date: 20171012
  Receipt Date: 20180914
  Transmission Date: 20181010
  Serious: Yes (Hospitalization)
  Sender: FDA-Public Use
  Company Number: US-ACTELION-A-NJ2017-160834

PATIENT
  Age: 19 Year
  Sex: Female
  Weight: 101.59 kg

DRUGS (9)
  1. TRACLEER [Suspect]
     Active Substance: BOSENTAN
     Indication: PULMONARY ARTERIAL HYPERTENSION
     Dosage: 125 MG, BID
     Route: 048
     Dates: start: 2015
  2. ZOFRAN [Concomitant]
     Active Substance: ONDANSETRON HYDROCHLORIDE
     Dosage: 80 MG, PRN
     Dates: start: 201512
  3. WARFARIN [Concomitant]
     Active Substance: WARFARIN
  4. REMODULIN [Concomitant]
     Active Substance: TREPROSTINIL
     Dosage: 10 NG/KG, PER MIN
     Dates: start: 2015
  5. SILDENAFIL. [Concomitant]
     Active Substance: SILDENAFIL
     Dosage: 20 MG, TID
     Dates: start: 2015
  6. CAMILA [Concomitant]
     Active Substance: NORETHINDRONE
     Dosage: 2.5 MG, QD
     Dates: start: 2017
  7. IMODIUM [Concomitant]
     Active Substance: LOPERAMIDE HYDROCHLORIDE
     Dosage: 2 MG, PRN
     Dates: start: 2015
  8. COUMADIN [Concomitant]
     Active Substance: WARFARIN SODIUM
  9. ELIQUIS [Concomitant]
     Active Substance: APIXABAN

REACTIONS (19)
  - Abdominal pain [Recovered/Resolved]
  - Urinary tract infection [Unknown]
  - Weight decreased [Unknown]
  - Escherichia infection [Recovered/Resolved]
  - Urosepsis [Recovered/Resolved]
  - Thyroxine increased [Unknown]
  - Eye movement disorder [Unknown]
  - Hyperthyroidism [Unknown]
  - Thyroid stimulating immunoglobulin increased [Unknown]
  - Cholelithotomy [Unknown]
  - Drug dose omission [Unknown]
  - Device issue [Unknown]
  - Pyrexia [Recovered/Resolved]
  - Dizziness [Unknown]
  - Abdominal pain upper [Unknown]
  - Blood thyroid stimulating hormone decreased [Unknown]
  - Abdominal discomfort [Unknown]
  - Tri-iodothyronine increased [Unknown]
  - Diarrhoea [Unknown]

NARRATIVE: CASE EVENT DATE: 20171004
